FAERS Safety Report 9742004 (Version 1)
Quarter: 2013Q4

REPORT INFORMATION
  Report Type: Spontaneous
  Country: US (occurrence: US)
  Receive Date: 20131210
  Receipt Date: 20131210
  Transmission Date: 20140711
  Serious: No
  Sender: FDA-Public Use
  Company Number: US-PFIZER INC-2013350141

PATIENT
  Age: 67 Year
  Sex: Female
  Weight: 74.83 kg

DRUGS (8)
  1. CELEBREX [Suspect]
     Indication: RHEUMATOID ARTHRITIS
     Dosage: 200 MG, 1X/DAY
     Route: 048
  2. CELEBREX [Suspect]
     Indication: OSTEOARTHRITIS
  3. ADVIL [Suspect]
     Indication: MIGRAINE
     Dosage: UNKNOWN DOSE AS NEEDED
     Dates: end: 2010
  4. ASPIRIN [Suspect]
     Indication: MIGRAINE
     Dosage: UNK
     Dates: end: 2010
  5. SYNTHROID [Concomitant]
     Indication: HYPOTHYROIDISM
     Dosage: UNK
  6. PROZAC [Concomitant]
     Dosage: UNK
  7. PROTONIX [Concomitant]
     Indication: GASTROOESOPHAGEAL REFLUX DISEASE
     Dosage: UNK, 2X/DAY
  8. METFORMIN [Concomitant]
     Indication: DIABETES MELLITUS
     Dosage: UNK, 1X/DAY
     Route: 048

REACTIONS (2)
  - Gastric disorder [Recovered/Resolved]
  - Ulcer [Recovered/Resolved]
